FAERS Safety Report 4785882-6 (Version None)
Quarter: 2005Q4

REPORT INFORMATION
  Report Type: 
  Country: None (occurrence: None)
  Receive Date: 20051003
  Receipt Date: 20050926
  Transmission Date: 20060501
  Serious: Yes (Life-Threatening)
  Sender: FDA-Public Use
  Company Number: PHFR2005GB03177

PATIENT
  Age: 22 Year
  Weight: 79 kg

DRUGS (3)
  1. DICLOFENAC SODIUM [Suspect]
     Indication: ARTHRITIS
     Dosage: 50MG DAILY
     Route: 048
     Dates: start: 20050811, end: 20050905
  2. PULMICORT [Concomitant]
     Indication: ASTHMA
     Dosage: 200UG DAILY
     Dates: start: 19900514
  3. BRICANYL [Concomitant]
     Indication: ASTHMA
     Dosage: 500UG DAILY
     Dates: start: 19911202

REACTIONS (3)
  - NAUSEA [None]
  - RHINORRHOEA [None]
  - WHEEZING [None]
